FAERS Safety Report 8180275-6 (Version None)
Quarter: 2012Q1

REPORT INFORMATION
  Report Type: 
  Country: None (occurrence: None)
  Receive Date: 20120302
  Receipt Date: 20120228
  Transmission Date: 20120608
  Serious: Yes (Other)
  Sender: FDA-Public Use
  Company Number: NL-GENZYME-CLOF-1001934

PATIENT
  Sex: Male
  Weight: 66 kg

DRUGS (32)
  1. ALLOPURINOL [Concomitant]
     Indication: PRODUCT USED FOR UNKNOWN INDICATION
     Dosage: 300 MG, QD
     Route: 048
     Dates: start: 20111028, end: 20111107
  2. AMPHOTERICIN B [Concomitant]
     Indication: PRODUCT USED FOR UNKNOWN INDICATION
     Dosage: 100 MG, UNK
     Route: 042
     Dates: start: 20111125, end: 20111125
  3. CLEMASTINE FUMARATE [Concomitant]
     Indication: PRODUCT USED FOR UNKNOWN INDICATION
     Dosage: 1 MG, UNK
     Route: 048
     Dates: start: 20111110, end: 20111118
  4. FUROSEMIDE [Concomitant]
     Dosage: 20 MG, UNK
     Route: 051
     Dates: start: 20111127, end: 20111127
  5. PREDNISOLONE [Concomitant]
     Dosage: 25 MG, UNK
     Route: 051
     Dates: start: 20111127, end: 20111127
  6. CALCIUM [Concomitant]
     Indication: PRODUCT USED FOR UNKNOWN INDICATION
     Dosage: 500 MG, QD
     Route: 048
     Dates: start: 20111102
  7. HALOPERIDOL [Concomitant]
     Indication: PRODUCT USED FOR UNKNOWN INDICATION
     Dosage: 1 MG, QD
     Route: 048
     Dates: start: 20111119, end: 20111128
  8. COTRIM [Concomitant]
     Indication: PROPHYLAXIS
     Dosage: 80/400 MG QD
     Route: 048
     Dates: start: 20111101
  9. PYRIDOXINE HCL [Concomitant]
     Indication: PRODUCT USED FOR UNKNOWN INDICATION
     Dosage: 20 MG, QD
     Route: 048
     Dates: start: 20111117
  10. CASPOFUNGIN ACETATE [Concomitant]
     Indication: INFECTION
     Dosage: 50 MG, QD
     Route: 042
     Dates: start: 20111128
  11. VORICONAZOLE [Concomitant]
     Indication: INFECTION
     Dosage: 200 MG, BID
     Route: 042
     Dates: start: 20111118, end: 20111123
  12. ESOMEPRAZOLE SODIUM [Concomitant]
     Dosage: 40 MG, CONTINUOUS
     Route: 042
     Dates: start: 20111130, end: 20111130
  13. CYTARABINE [Suspect]
     Indication: ACUTE LEUKAEMIA
     Dosage: 360 MG, QD X 7
     Route: 042
     Dates: start: 20111102, end: 20111108
  14. ISONIAZID [Concomitant]
     Indication: ANTIBIOTIC PROPHYLAXIS
     Dosage: 300 MG, QD
     Route: 048
     Dates: start: 20111101
  15. FUROSEMIDE [Concomitant]
     Dosage: 20 MG, UNK
     Route: 051
     Dates: start: 20111115, end: 20111115
  16. ITRACONAZOLE [Concomitant]
     Indication: PROPHYLAXIS
     Dosage: 200 MG, QD
     Route: 048
     Dates: start: 20111028, end: 20111118
  17. VORICONAZOLE [Concomitant]
     Dosage: 200 MG, BID
     Route: 048
     Dates: start: 20111123, end: 20111125
  18. CLEMASTINE FUMARATE [Concomitant]
     Dosage: 2 MG, QD
     Route: 051
     Dates: start: 20111127, end: 20111127
  19. VANCOMYCIN [Concomitant]
     Indication: INFECTION
     Dosage: 1000 MG, BID
     Route: 042
     Dates: start: 20111102, end: 20111112
  20. AMPHOTERICIN B [Concomitant]
     Indication: PRODUCT USED FOR UNKNOWN INDICATION
     Dosage: 500 MG, TID
     Route: 048
     Dates: start: 20111028, end: 20111125
  21. ESOMEPRAZOLE SODIUM [Concomitant]
     Indication: PROPHYLAXIS
     Dosage: 40 MG, QD
     Route: 048
     Dates: start: 20111104
  22. NORFLOXACIN [Concomitant]
     Indication: PROPHYLAXIS
     Dosage: 400 MG, BID
     Route: 048
     Dates: start: 20111028
  23. VALACICLOVIR [Concomitant]
     Indication: PROPHYLAXIS
     Dosage: 500 MG, BID
     Route: 048
     Dates: start: 20111101
  24. CASPOFUNGIN ACETATE [Concomitant]
     Dosage: 70 MG, UNK
     Route: 042
     Dates: start: 20111128, end: 20111128
  25. CEFTAZIDIME [Concomitant]
     Indication: PRODUCT USED FOR UNKNOWN INDICATION
     Dosage: 200 MG, TID
     Route: 042
     Dates: start: 20111029, end: 20111108
  26. FUROSEMIDE [Concomitant]
     Indication: PRODUCT USED FOR UNKNOWN INDICATION
     Dosage: 20 MG, UNK
     Route: 051
     Dates: start: 20111111, end: 20111111
  27. PREDNISOLONE [Concomitant]
     Indication: PRODUCT USED FOR UNKNOWN INDICATION
     Dosage: 20 MG, QD
     Route: 048
     Dates: start: 20111109, end: 20111114
  28. PREDNISOLONE [Concomitant]
     Dosage: 5 MG, QD
     Route: 048
     Dates: start: 20111108, end: 20111114
  29. EVOLTRA [Suspect]
     Indication: ACUTE LEUKAEMIA
     Dosage: 18 MG, QDX5
     Route: 042
     Dates: start: 20111102, end: 20111106
  30. IDARUBICIN HCL [Suspect]
     Indication: ACUTE LEUKAEMIA
     Dosage: 22 MG, QDX3
     Route: 042
     Dates: start: 20111102, end: 20111104
  31. IMIPENEM AND CILASTATIN SODIUM [Concomitant]
     Indication: INFECTION
     Dosage: 500 MG, QID
     Route: 042
     Dates: start: 20111109, end: 20111202
  32. VANCOMYCIN [Concomitant]
     Dosage: 1000 MG, BID
     Route: 042
     Dates: start: 20111121, end: 20111128

REACTIONS (1)
  - DISSEMINATED INTRAVASCULAR COAGULATION [None]
